FAERS Safety Report 5281985-0 (Version None)
Quarter: 2007Q1

REPORT INFORMATION
  Report Type: 
  Country: None (occurrence: None)
  Receive Date: 20070330
  Receipt Date: 20070329
  Transmission Date: 20070707
  Serious: Yes (Life-Threatening, Hospitalization)
  Sender: FDA-Public Use
  Company Number: GB-BOEHRINGER INGELHEIM PHARMACEUTICALS, INC.-2007-BP-03952BP

PATIENT
  Sex: Female
  Weight: 176 kg

DRUGS (8)
  1. MICARDIS [Suspect]
     Indication: CARDIOVASCULAR DISORDER
     Dates: start: 20040317
  2. MICARDIS [Suspect]
     Indication: CEREBROVASCULAR ACCIDENT PROPHYLAXIS
  3. DILTIAZEM [Suspect]
  4. SIMVASTATIN [Suspect]
  5. ASPIRIN [Concomitant]
  6. CALCIDRINE [Concomitant]
  7. SODIUM BICARBONATE [Concomitant]
  8. INHALERS [Concomitant]

REACTIONS (1)
  - RENAL FAILURE ACUTE [None]
